FAERS Safety Report 13899266 (Version 1)
Quarter: 2017Q3

REPORT INFORMATION
  Report Type: Spontaneous
  Country: US (occurrence: US)
  Receive Date: 20170823
  Receipt Date: 20170823
  Transmission Date: 20171127
  Serious: No
  Sender: FDA-Public Use
  Company Number: US-JAZZ-2017-US-007739

PATIENT
  Sex: Male

DRUGS (7)
  1. XYREM [Suspect]
     Active Substance: SODIUM OXYBATE
     Indication: NARCOLEPSY
     Dosage: 2.25G, BID
     Route: 048
     Dates: start: 201611, end: 201611
  2. GUAIFENESIN. [Concomitant]
     Active Substance: GUAIFENESIN
  3. NUVIGIL [Concomitant]
     Active Substance: ARMODAFINIL
  4. XARELTO [Concomitant]
     Active Substance: RIVAROXABAN
  5. XYREM [Suspect]
     Active Substance: SODIUM OXYBATE
     Dosage: 3.75G, BID
     Route: 048
     Dates: start: 201701
  6. TYLENOL EXTRA STRENGTH [Concomitant]
     Active Substance: ACETAMINOPHEN
  7. XYREM [Suspect]
     Active Substance: SODIUM OXYBATE
     Dosage: DOSE ADJUSTMENT
     Route: 048
     Dates: start: 201611, end: 201701

REACTIONS (5)
  - Hypersensitivity [Not Recovered/Not Resolved]
  - Salivary hypersecretion [Unknown]
  - Feeling abnormal [Unknown]
  - Influenza [Unknown]
  - Respiratory tract congestion [Not Recovered/Not Resolved]

NARRATIVE: CASE EVENT DATE: 2016
